FAERS Safety Report 8219784-X (Version None)
Quarter: 2012Q1

REPORT INFORMATION
  Report Type: 
  Country: None (occurrence: None)
  Receive Date: 20120319
  Receipt Date: 20120313
  Transmission Date: 20120608
  Serious: Yes (Death, Hospitalization)
  Sender: FDA-Public Use
  Company Number: US-CELGENEUS-163-21880-11080409

PATIENT
  Sex: Male

DRUGS (8)
  1. AMODRINE [Concomitant]
     Dosage: 200 MILLIGRAM
     Route: 065
  2. COUMADIN [Concomitant]
     Dosage: 10 MILLIGRAM
     Route: 065
  3. REVLIMID [Suspect]
     Indication: MULTIPLE MYELOMA
     Dosage: 10 MILLIGRAM
     Route: 048
     Dates: start: 20110325, end: 20110701
  4. REVLIMID [Suspect]
     Dosage: 5 MILLIGRAM
     Route: 048
     Dates: start: 20110722, end: 20110826
  5. REVLIMID [Suspect]
     Dosage: 5 MILLIGRAM
     Route: 048
     Dates: start: 20111101
  6. ASPIRIN [Concomitant]
     Dosage: 81 MILLIGRAM
     Route: 065
  7. DECADRON [Concomitant]
     Route: 065
  8. VANCOMYCIN [Concomitant]
     Indication: INFECTION
     Route: 041

REACTIONS (9)
  - GINGIVAL BLEEDING [None]
  - LEUKOPENIA [None]
  - PLATELET COUNT DECREASED [None]
  - NEUTROPENIA [None]
  - ASTHENIA [None]
  - DEATH [None]
  - PLEURAL EFFUSION [None]
  - EPISTAXIS [None]
  - FATIGUE [None]
